FAERS Safety Report 9772616 (Version 1)
Quarter: 2013Q4

REPORT INFORMATION
  Report Type: Spontaneous
  Country: US (occurrence: US)
  Receive Date: 20131219
  Receipt Date: 20131219
  Transmission Date: 20140711
  Serious: No
  Sender: FDA-Public Use
  Company Number: US-PFIZER INC-2013363029

PATIENT
  Sex: Male

DRUGS (1)
  1. LYRICA [Suspect]
     Dosage: UNK
     Dates: start: 201312, end: 20131215

REACTIONS (7)
  - Restlessness [Unknown]
  - Nausea [Unknown]
  - Headache [Unknown]
  - Balance disorder [Unknown]
  - Incontinence [Unknown]
  - Dizziness [Unknown]
  - Drug withdrawal syndrome [Unknown]
